FAERS Safety Report 22265550 (Version 2)
Quarter: 2023Q2

REPORT INFORMATION
  Report Type: Spontaneous
  Country: PT (occurrence: PT)
  Receive Date: 20230428
  Receipt Date: 20230510
  Transmission Date: 20230722
  Serious: Yes (Other)
  Sender: FDA-Public Use
  Company Number: PT-AMGEN-PRTSP2023071252

PATIENT
  Age: 75 Year

DRUGS (1)
  1. PROLIA [Suspect]
     Active Substance: DENOSUMAB
     Indication: Product used for unknown indication
     Dosage: UNK
     Route: 065

REACTIONS (5)
  - Chronic kidney disease [Unknown]
  - Bone disorder [Not Recovered/Not Resolved]
  - Proteinuria [Unknown]
  - Hyperparathyroidism secondary [Unknown]
  - Hypocalcaemia [Unknown]
